FAERS Safety Report 14011474 (Version 4)
Quarter: 2019Q2

REPORT INFORMATION
  Report Type: Report from Study
  Country: US (occurrence: US)
  Receive Date: 20170926
  Receipt Date: 20190527
  Transmission Date: 20190711
  Serious: Yes (Other)
  Sender: FDA-Public Use
  Company Number: PHHY2017US057155

PATIENT
  Age: 23 Year
  Sex: Female

DRUGS (2)
  1. GILENYA [Suspect]
     Active Substance: FINGOLIMOD HYDROCHLORIDE
     Indication: MULTIPLE SCLEROSIS
     Dosage: UNK, QD
     Route: 048
  2. KYLEENA [Concomitant]
     Active Substance: LEVONORGESTREL
     Indication: CONTRACEPTION
     Dosage: HORMONAL, UNK
     Route: 015
     Dates: start: 20180524

REACTIONS (5)
  - Sinusitis [Recovered/Resolved]
  - Irritable bowel syndrome [Unknown]
  - Viral upper respiratory tract infection [Recovered/Resolved]
  - Upper respiratory tract infection [Unknown]
  - Haematochezia [Unknown]

NARRATIVE: CASE EVENT DATE: 20170110
